FAERS Safety Report 6698168-X (Version None)
Quarter: 2010Q2

REPORT INFORMATION
  Report Type: 
  Country: None (occurrence: None)
  Receive Date: 20100426
  Receipt Date: 20100426
  Transmission Date: 20101027
  Serious: Yes (Hospitalization)
  Sender: FDA-Public Use
  Company Number: None

PATIENT
  Age: 67 Year
  Sex: Female
  Weight: 49.2153 kg

DRUGS (3)
  1. SORAFENIB 200MG 200MG [Suspect]
     Indication: METASTASIS
     Dosage: 400MG TWICE DAILY PO
     Route: 048
     Dates: start: 20100405, end: 20100412
  2. SORAFENIB 200MG 200MG [Suspect]
     Indication: SQUAMOUS CELL CARCINOMA
     Dosage: 400MG TWICE DAILY PO
     Route: 048
     Dates: start: 20100405, end: 20100412
  3. CETUXIMAB [Suspect]
     Dosage: 250MG/M2 WEEKLY IV DRIP
     Route: 041
     Dates: start: 20100405, end: 20100412

REACTIONS (3)
  - DECREASED APPETITE [None]
  - FATIGUE [None]
  - WEIGHT DECREASED [None]
